FAERS Safety Report 21074254 (Version 10)
Quarter: 2023Q1

REPORT INFORMATION
  Report Type: Report from Study
  Country: TR (occurrence: None)
  Receive Date: 20220713
  Receipt Date: 20230316
  Transmission Date: 20230417
  Serious: Yes (Hospitalization)
  Sender: FDA-Public Use
  Company Number: TR-ROCHE-3136694

PATIENT
  Age: 64 Year
  Sex: Male
  Weight: 56 kg

DRUGS (6)
  1. TIRAGOLUMAB [Suspect]
     Active Substance: TIRAGOLUMAB
     Indication: Lung adenocarcinoma
     Dosage: START DATE OF MOST RECENT DOSE OF STUDY DRUG PRIOR TO AE 10-JUN-2022: 600 MG?START DATE OF MOST RECE
     Route: 042
     Dates: start: 20210729
  2. ATEZOLIZUMAB [Suspect]
     Active Substance: ATEZOLIZUMAB
     Indication: Lung adenocarcinoma
     Dosage: DOSE LAST STUDY DRUG ADMIN PRIOR AE IS 1200 MG?START DATE OF MOST RECENT DOSE OF STUDY DRUG PRIOR TO
     Route: 041
     Dates: start: 20210729
  3. LEVOTHYROXINE SODIUM [Concomitant]
     Active Substance: LEVOTHYROXINE SODIUM
     Indication: Hypothyroidism
     Route: 048
     Dates: start: 20210729
  4. PAROL [Concomitant]
     Active Substance: ACETAMINOPHEN
     Indication: Headache
     Route: 048
  5. BILASTINE [Concomitant]
     Active Substance: BILASTINE
     Indication: Dermatitis
     Route: 048
     Dates: start: 20220318, end: 20220630
  6. BETAMETHASONE DIPROPIONATE\GENTAMICIN SULFATE [Concomitant]
     Active Substance: BETAMETHASONE DIPROPIONATE\GENTAMICIN SULFATE
     Indication: Dermatitis
     Route: 061
     Dates: start: 20220318

REACTIONS (3)
  - Adrenal insufficiency [Recovering/Resolving]
  - Weight decreased [Recovered/Resolved]
  - Decreased appetite [Recovered/Resolved]

NARRATIVE: CASE EVENT DATE: 20220615
